FAERS Safety Report 8560857-X (Version None)
Quarter: 2012Q3

REPORT INFORMATION
  Report Type: 
  Country: None (occurrence: None)
  Receive Date: 20120802
  Receipt Date: 20120726
  Transmission Date: 20120928
  Serious: Yes (Hospitalization)
  Sender: FDA-Public Use
  Company Number: AU-B.I. PHARMACEUTICALS,INC./RIDGEFIELD-2012-AU-00999AU

PATIENT
  Sex: Male
  Weight: 91 kg

DRUGS (6)
  1. PRADAXA [Suspect]
     Dosage: 300 MG
     Dates: start: 20120601
  2. PRADAXA [Suspect]
     Indication: ATRIAL FLUTTER
     Dosage: 220 MG
  3. SOTALOL HYDROCHLORIDE [Concomitant]
     Dosage: 160 MG
  4. ATORVASTATIN [Concomitant]
     Dosage: 40 MG
  5. ACETAMINOPHEN [Concomitant]
     Dosage: 4000 MG
  6. ALLOPURINOL [Concomitant]
     Dosage: 300 MG

REACTIONS (3)
  - DYSARTHRIA [None]
  - DYSPHAGIA [None]
  - TRANSIENT ISCHAEMIC ATTACK [None]
